FAERS Safety Report 22344831 (Version 1)
Quarter: 2023Q2

REPORT INFORMATION
  Report Type: Report from Study
  Country: US (occurrence: US)
  Receive Date: 20230519
  Receipt Date: 20230519
  Transmission Date: 20230721
  Serious: Yes (Other)
  Sender: FDA-Public Use
  Company Number: US-JNJFOC-20190410601

PATIENT
  Age: 12 Year
  Sex: Female
  Weight: 58.1 kg

DRUGS (3)
  1. PLACEBO [Suspect]
     Active Substance: UNSPECIFIED INGREDIENT
     Indication: Major depression
     Dates: start: 20180619, end: 20180621
  2. PLACEBO [Suspect]
     Active Substance: UNSPECIFIED INGREDIENT
     Indication: Suicidal ideation
  3. ESCITALOPRAM [Concomitant]
     Active Substance: ESCITALOPRAM OXALATE
     Indication: Antidepressant therapy
     Route: 048
     Dates: start: 20180613, end: 20180625

REACTIONS (1)
  - Suicidal behaviour [Recovered/Resolved]

NARRATIVE: CASE EVENT DATE: 20180716
